FAERS Safety Report 4818512-5 (Version None)
Quarter: 2005Q4

REPORT INFORMATION
  Report Type: 
  Country: None (occurrence: None)
  Receive Date: 20051031
  Receipt Date: 20051019
  Transmission Date: 20060501
  Serious: Yes (Life-Threatening, Other)
  Sender: FDA-Public Use
  Company Number: 2005136587

PATIENT
  Age: 82 Year
  Sex: Female
  Weight: 92.0802 kg

DRUGS (8)
  1. ZYVOX [Suspect]
     Indication: BACTERIAL INFECTION
     Dosage: 1200 MG (600 MG, 2 IN 1 D), ORAL
     Route: 048
     Dates: start: 20050920, end: 20050927
  2. HUMALOG [Concomitant]
  3. HUMULIN (INSULIN HUMAN, INSULIN ISOPHANE, HUMAN BIOSYNTHETIC) [Concomitant]
  4. ALL OTHER THERAPEUTIC PRODUCTS (ALL OTHER THERAPEUTIC PRODUCTS) [Concomitant]
  5. PACERONE [Concomitant]
  6. ALL OTHER THERAPEUTICS PRODUCTS (ALL OTHER THERAPEUTIC PRODUCTS) [Concomitant]
  7. CLINDAMYCIN (CLINDAMYCIN) [Concomitant]
  8. CIPROFLOXACIN [Concomitant]

REACTIONS (6)
  - PHARYNGEAL OEDEMA [None]
  - PRURITUS GENERALISED [None]
  - RASH [None]
  - STOMATITIS [None]
  - TONGUE DISCOLOURATION [None]
  - TONGUE ULCERATION [None]
